FAERS Safety Report 7275800-3 (Version None)
Quarter: 2011Q1

REPORT INFORMATION
  Report Type: 
  Country: None (occurrence: None)
  Receive Date: 20110204
  Receipt Date: 20110124
  Transmission Date: 20110831
  Serious: Yes (Other)
  Sender: FDA-Public Use
  Company Number: US-WATSON-2011-01275

PATIENT
  Sex: Male

DRUGS (6)
  1. FOLIC ACID (WATSON LABORATORIES) [Suspect]
     Indication: DIABETIC NEPHROPATHY
  2. PYRIDOXINE HYDROCHLORIDE [Suspect]
     Indication: SUPPLEMENTATION THERAPY
     Dosage: 25 MG, DAILY
  3. PYRIDOXINE HYDROCHLORIDE [Suspect]
     Indication: DIABETIC NEPHROPATHY
  4. CYANOCOBALAMIN [Suspect]
     Indication: SUPPLEMENTATION THERAPY
     Dosage: 1 MG, DAILY
  5. CYANOCOBALAMIN [Suspect]
     Indication: DIABETIC NEPHROPATHY
  6. FOLIC ACID (WATSON LABORATORIES) [Suspect]
     Indication: SUPPLEMENTATION THERAPY
     Dosage: 2.5 MG, DAILY

REACTIONS (1)
  - GLOMERULAR FILTRATION RATE DECREASED [None]
